FAERS Safety Report 23337641 (Version 1)
Quarter: 2023Q4

REPORT INFORMATION
  Report Type: Spontaneous
  Country: PL (occurrence: PL)
  Receive Date: 20231226
  Receipt Date: 20231226
  Transmission Date: 20240110
  Serious: Yes (Hospitalization)
  Sender: FDA-Public Use
  Company Number: PL-EMA-DD-20231128-7482689-142549

PATIENT
  Age: 64 Year
  Sex: Male

DRUGS (12)
  1. SERTRALINE HYDROCHLORIDE [Interacting]
     Active Substance: SERTRALINE HYDROCHLORIDE
     Indication: Insomnia
     Dosage: 50 MG IN THE MORNING
  2. METFORMIN [Interacting]
     Active Substance: METFORMIN HYDROCHLORIDE
     Indication: Type 2 diabetes mellitus
     Dosage: 1000 MILLIGRAM, QID
  3. OXYCODONE HYDROCHLORIDE [Suspect]
     Active Substance: OXYCODONE HYDROCHLORIDE
     Indication: Arthralgia
     Dosage: 20 MILLIGRAM, DAILY (20 MG PER DAY (TITRATED DOSE))
  4. PREGABALIN [Suspect]
     Active Substance: PREGABALIN
     Indication: Arthralgia
     Dosage: 75 MG, 2X PER DAY
  5. DEXKETOPROFEN TROMETAMOL [Suspect]
     Active Substance: DEXKETOPROFEN TROMETAMOL
     Indication: Arthralgia
     Dosage: 50 MG, 3X PER DAY
  6. OMEPRAZOLE [Suspect]
     Active Substance: OMEPRAZOLE
     Indication: Reflux gastritis
     Dosage: 15 MILLIGRAM
  7. METAMIZOLE [Suspect]
     Active Substance: METAMIZOLE
     Indication: Arthralgia
     Dosage: 1000 MG, 3X PER DAY
  8. ACETAMINOPHEN\TRAMADOL [Interacting]
     Active Substance: ACETAMINOPHEN\TRAMADOL
     Indication: Arthralgia
     Dosage: TRAMADOL 75 MG/ PARACETAMOL 650 MG THRICE DAILY
  9. MIRTAZAPINE [Interacting]
     Active Substance: MIRTAZAPINE
     Indication: Depression
     Dosage: 15 MG,AT NIGHT
  10. DAPAGLIFLOZIN [Interacting]
     Active Substance: DAPAGLIFLOZIN
     Indication: Type 2 diabetes mellitus
     Dosage: 10 MG, PER DAY
  11. PANTOPRAZOLE [Concomitant]
     Active Substance: PANTOPRAZOLE
     Indication: Reflux gastritis
     Dosage: UNK
  12. CIPROFLOXACIN [Interacting]
     Active Substance: CIPROFLOXACIN
     Indication: Type 2 diabetes mellitus
     Dosage: 500 MG, 2X PER DAY

REACTIONS (4)
  - Sedation [Unknown]
  - Drug interaction [Recovered/Resolved]
  - Arthralgia [Recovered/Resolved]
  - Contraindicated product administered [Unknown]
